FAERS Safety Report 21114826 (Version 14)
Quarter: 2025Q1

REPORT INFORMATION
  Report Type: Spontaneous
  Country: US (occurrence: US)
  Receive Date: 20220721
  Receipt Date: 20250318
  Transmission Date: 20250409
  Serious: Yes (Hospitalization, Other)
  Sender: PFIZER
  Company Number: US-PFIZER INC-PV202200026385

PATIENT
  Age: 71 Year
  Sex: Female
  Weight: 79.819 kg

DRUGS (6)
  1. IBRANCE [Suspect]
     Active Substance: PALBOCICLIB
     Indication: Breast cancer metastatic
     Route: 048
     Dates: start: 202103
  2. IBRANCE [Suspect]
     Active Substance: PALBOCICLIB
     Dates: end: 2023
  3. IBRANCE [Suspect]
     Active Substance: PALBOCICLIB
     Route: 048
  4. IBRANCE [Suspect]
     Active Substance: PALBOCICLIB
  5. IBRANCE [Suspect]
     Active Substance: PALBOCICLIB
  6. ANASTROZOLE [Suspect]
     Active Substance: ANASTROZOLE
     Indication: Breast cancer metastatic
     Dates: start: 2018

REACTIONS (13)
  - Removal of foreign body [Unknown]
  - Cartilage injury [Unknown]
  - Malaise [Unknown]
  - White blood cell count decreased [Unknown]
  - Red blood cell count decreased [Unknown]
  - Neutrophil count decreased [Unknown]
  - Platelet count decreased [Unknown]
  - Pain [Unknown]
  - Gait inability [Unknown]
  - Memory impairment [Unknown]
  - Arthralgia [Unknown]
  - Discomfort [Unknown]
  - Crying [Unknown]

NARRATIVE: CASE EVENT DATE: 20230101
